FAERS Safety Report 25565950 (Version 4)
Quarter: 2025Q4

REPORT INFORMATION
  Report Type: Spontaneous
  Country: US (occurrence: US)
  Receive Date: 20250716
  Receipt Date: 20251016
  Transmission Date: 20260117
  Serious: No
  Sender: PFIZER
  Company Number: US-PFIZER INC-202500141970

PATIENT
  Age: 72 Year
  Sex: Female
  Weight: 75.283 kg

DRUGS (2)
  1. IBRANCE [Suspect]
     Active Substance: PALBOCICLIB
     Indication: Breast cancer female
     Dosage: 125 MG
     Route: 048
  2. IBRANCE [Suspect]
     Active Substance: PALBOCICLIB
     Dosage: 100 MG, CYCLIC, (1 CAPSULE DAILY. TAKE ON DAYS 1-14 OF A 28-DAY CYCLE. TAKE WITH OR WITHOUT FOOD)
     Route: 048

REACTIONS (4)
  - White blood cell count decreased [Unknown]
  - Red blood cell count decreased [Unknown]
  - Product prescribing error [Unknown]
  - Off label use [Unknown]
